FAERS Safety Report 17517032 (Version 3)
Quarter: 2020Q2

REPORT INFORMATION
  Report Type: Report from Study
  Country: US (occurrence: US)
  Receive Date: 20200309
  Receipt Date: 20200429
  Transmission Date: 20200713
  Serious: Yes (Hospitalization)
  Sender: FDA-Public Use
  Company Number: NVSC2020US064067

PATIENT
  Sex: Male
  Weight: 21 kg

DRUGS (1)
  1. ILARIS [Suspect]
     Active Substance: CANAKINUMAB
     Indication: PRODUCT USED FOR UNKNOWN INDICATION
     Dosage: 80 MG, Q4W
     Route: 058

REACTIONS (3)
  - Condition aggravated [Unknown]
  - Still^s disease [Unknown]
  - Haemophagocytic lymphohistiocytosis [Unknown]
